FAERS Safety Report 9559260 (Version 1)
Quarter: 2013Q3

REPORT INFORMATION
  Report Type: Spontaneous
  Country: US (occurrence: US)
  Receive Date: 20130927
  Receipt Date: 20130927
  Transmission Date: 20140515
  Serious: Yes (Other)
  Sender: FDA-Public Use
  Company Number: PHEH2013US019284

PATIENT
  Sex: Female

DRUGS (10)
  1. TASIGNA [Suspect]
     Indication: CHRONIC MYELOID LEUKAEMIA
     Dosage: 200 MG, BID
  2. GAPENTIN [Concomitant]
     Dosage: 600 MG, BID
  3. BUMEX [Concomitant]
     Dosage: UNK UKN, UNK
  4. SERTRALINE [Concomitant]
     Dosage: UNK UKN, UNK
  5. RUVASTIN [Concomitant]
     Dosage: UNK UKN, UNK
  6. MULTIVITAMIN [Concomitant]
     Dosage: UNK UKN, UNK
  7. VITAMIN C [Concomitant]
     Dosage: UNK UKN, UNK
  8. VITAMIN E [Concomitant]
     Dosage: UNK UKN, UNK
  9. VITAMIN D3 [Concomitant]
     Dosage: UNK UKN, UNK
  10. FOLIC ACID [Concomitant]
     Dosage: UNK UKN, UNK

REACTIONS (3)
  - Weight decreased [Unknown]
  - Flatulence [Unknown]
  - Abdominal distension [Unknown]
